FAERS Safety Report 7186117-X (Version None)
Quarter: 2010Q4

REPORT INFORMATION
  Report Type: 
  Country: None (occurrence: None)
  Receive Date: 20101222
  Receipt Date: 20100615
  Transmission Date: 20110411
  Serious: No
  Sender: FDA-Public Use
  Company Number: US-AMGEN-KDL419506

PATIENT

DRUGS (5)
  1. ENBREL [Suspect]
     Indication: RHEUMATOID ARTHRITIS
     Dosage: 50 MG, QWK
     Route: 058
     Dates: start: 20040701, end: 20091115
  2. ENBREL [Suspect]
     Indication: PSORIATIC ARTHROPATHY
  3. ENBREL [Suspect]
     Indication: PSORIASIS
  4. VENLAFAXINE HCL [Concomitant]
     Dosage: UNK UNK, UNK
     Dates: start: 20070101
  5. SERTRALINE HYDROCHLORIDE [Concomitant]
     Dosage: 50 MG, QD

REACTIONS (2)
  - PSORIASIS [None]
  - STREPTOCOCCUS TEST POSITIVE [None]
